FAERS Safety Report 9341893 (Version 1)
Quarter: 2013Q2

REPORT INFORMATION
  Report Type: Spontaneous
  Country: US (occurrence: None)
  Receive Date: 20130606
  Receipt Date: 20130606
  Transmission Date: 20140414
  Serious: Yes (Life-Threatening)
  Sender: FDA-Public Use
  Company Number: 20130274

PATIENT
  Age: 49 Year
  Sex: Female

DRUGS (1)
  1. FOSPHENYTOIN SODIUM [Suspect]
     Indication: STATUS EPILEPTICUS
     Dosage: 18 PE/KG OVER 15 MIN

REACTIONS (3)
  - Apnoea [None]
  - Cardiotoxicity [None]
  - Cardiogenic shock [None]
